FAERS Safety Report 6578141-2 (Version None)
Quarter: 2010Q1

REPORT INFORMATION
  Report Type: 
  Country: None (occurrence: None)
  Receive Date: 20100211
  Receipt Date: 20100203
  Transmission Date: 20100710
  Serious: Yes (Other)
  Sender: FDA-Public Use
  Company Number: US-PFIZER INC-2010014931

PATIENT
  Sex: Female

DRUGS (2)
  1. NEURONTIN [Suspect]
  2. POTASSIUM CHLORIDE [Suspect]
     Route: 042

REACTIONS (3)
  - BURNING SENSATION [None]
  - CONVULSION [None]
  - MENTAL IMPAIRMENT [None]
